FAERS Safety Report 24384515 (Version 2)
Quarter: 2024Q4

REPORT INFORMATION
  Report Type: Report from Study
  Country: JP (occurrence: JP)
  Receive Date: 20241001
  Receipt Date: 20241024
  Transmission Date: 20250115
  Serious: Yes (Hospitalization, Other)
  Sender: ALEXION PHARMACEUTICALS
  Company Number: JP-AstraZeneca-CH-00678961A

PATIENT
  Age: 75 Year

DRUGS (14)
  1. ULTOMIRIS [Suspect]
     Active Substance: RAVULIZUMAB-CWVZ
     Indication: Myasthenia gravis
     Dosage: 2400 MILLIGRAM, SINGLE
  2. ULTOMIRIS [Suspect]
     Active Substance: RAVULIZUMAB-CWVZ
     Dosage: 3000 MILLIGRAM, Q8W
  3. NEXIUM [Concomitant]
     Active Substance: ESOMEPRAZOLE MAGNESIUM
     Dosage: 10 MILLIGRAM, QD AFTER BREAKFAST
     Route: 065
  4. SULFAMETHOXAZOLE\TRIMETHOPRIM [Concomitant]
     Active Substance: SULFAMETHOXAZOLE\TRIMETHOPRIM
     Indication: Antibiotic therapy
     Dosage: 2 DOSAGE FORM, QOD AFTER BREAKFAST
     Route: 065
  5. MAGNESIUM OXIDE [Concomitant]
     Active Substance: MAGNESIUM OXIDE
     Indication: Antacid therapy
     Dosage: 250 MILLIGRAM, TID AFTER BREAKFAST, LUNCH AND DINNER
     Route: 065
  6. REBAMIPIDE [Concomitant]
     Active Substance: REBAMIPIDE
     Indication: Gastritis
     Dosage: 100 MILLIGRAM, TID AFTER BREAKFAST, LUNCH AND DINNER
     Route: 065
  7. REBAMIPIDE [Concomitant]
     Active Substance: REBAMIPIDE
     Indication: Gastric ulcer
  8. PREDONINE [Concomitant]
     Active Substance: PREDNISOLONE
     Indication: Steroid therapy
     Dosage: 5 MILLIGRAM, BID AFTER BREAKFAST
     Route: 065
  9. NEORAL [Concomitant]
     Active Substance: CYCLOSPORINE
     Indication: Immunosuppressant drug therapy
     Dosage: 50 MILLIGRAM, BID AFTER BREAKFAST AND DINNER
     Route: 065
  10. NEORAL [Concomitant]
     Active Substance: CYCLOSPORINE
     Dosage: 10 MILLIGRAM, BID AFTER BREAKFAST AND DINNER
     Route: 065
  11. LOXONIN PAP [Concomitant]
     Indication: Analgesic therapy
     Dosage: 100 MILLIGRAM, QD AS PHYSICIAN^S INSTRUCTION
     Route: 065
  12. ICOSAPENT ETHYL [Concomitant]
     Active Substance: ICOSAPENT ETHYL
     Dosage: 900 MILLIGRAM, QD AFTER BREAKFAST
     Route: 065
  13. LIPITOR [Concomitant]
     Active Substance: ATORVASTATIN CALCIUM
     Dosage: 10 MILLIGRAM, QOD AFTER DINNER
     Route: 065
  14. SODIUM FERROUS CITRATE [Concomitant]
     Active Substance: SODIUM FERROUS CITRATE
     Dosage: 50 MILLIGRAM, QD AFTER BREAKFAST
     Route: 065

REACTIONS (10)
  - Large intestine perforation [Recovering/Resolving]
  - Peritonitis [Recovering/Resolving]
  - Septic shock [Recovering/Resolving]
  - Postoperative abscess [Unknown]
  - Ascites [Unknown]
  - Muscular weakness [Unknown]
  - Pneumonia aspiration [Recovering/Resolving]
  - Diverticulitis [Unknown]
  - Dysphagia [Unknown]
  - Inflammation [Recovering/Resolving]
